FAERS Safety Report 24822810 (Version 2)
Quarter: 2025Q1

REPORT INFORMATION
  Report Type: Report from Study
  Country: US (occurrence: US)
  Receive Date: 20250109
  Receipt Date: 20250116
  Transmission Date: 20250408
  Serious: Yes (Other)
  Sender: TAKEDA
  Company Number: US-TAKEDA-2025TUS002321

PATIENT
  Sex: Female
  Weight: 86 kg

DRUGS (4)
  1. VORTIOXETINE [Suspect]
     Active Substance: VORTIOXETINE
     Indication: Generalised anxiety disorder
     Dosage: 10 MILLIGRAM, QD
     Dates: start: 20241223, end: 20241230
  2. VORTIOXETINE [Suspect]
     Active Substance: VORTIOXETINE
     Indication: Major depression
  3. VORTIOXETINE [Suspect]
     Active Substance: VORTIOXETINE
     Indication: Depression
  4. ZYRTEC [Concomitant]
     Active Substance: CETIRIZINE HYDROCHLORIDE
     Indication: Seasonal allergy

REACTIONS (1)
  - Suicidal ideation [Recovering/Resolving]
